FAERS Safety Report 24760052 (Version 1)
Quarter: 2024Q4

REPORT INFORMATION
  Report Type: Spontaneous
  Country: US (occurrence: US)
  Receive Date: 20241220
  Receipt Date: 20241220
  Transmission Date: 20250115
  Serious: Yes (Other)
  Sender: INSMED
  Company Number: US-INSMED, INC.-2024-05124-US

PATIENT
  Sex: Female

DRUGS (4)
  1. ARIKAYCE [Suspect]
     Active Substance: AMIKACIN
     Indication: Mycobacterium avium complex infection
     Dosage: UNK, UNK
     Route: 055
     Dates: start: 202205, end: 202306
  2. ETHAMBUTOL [Suspect]
     Active Substance: ETHAMBUTOL HYDROCHLORIDE
     Indication: Mycobacterium avium complex infection
     Dosage: UNK, UNK
     Route: 065
     Dates: start: 2022
  3. RIFABUTIN [Suspect]
     Active Substance: RIFABUTIN
     Indication: Mycobacterium avium complex infection
     Dosage: UNK, UNK
     Route: 065
     Dates: start: 2022
  4. CLARITHROMYCIN [Suspect]
     Active Substance: CLARITHROMYCIN
     Indication: Mycobacterium avium complex infection
     Dosage: UNK UNK, UNK
     Route: 065
     Dates: start: 2022

REACTIONS (6)
  - Mycobacterium chelonae infection [Unknown]
  - Atypical mycobacterial lower respiratory tract infection [Unknown]
  - Condition aggravated [Not Recovered/Not Resolved]
  - Blood creatinine increased [Unknown]
  - Cough [Unknown]
  - Tinnitus [Unknown]
